FAERS Safety Report 7234912-0 (Version None)
Quarter: 2011Q1

REPORT INFORMATION
  Report Type: 
  Country: None (occurrence: None)
  Receive Date: 20110120
  Receipt Date: 20110110
  Transmission Date: 20110831
  Serious: Yes (Hospitalization)
  Sender: FDA-Public Use
  Company Number: PHHO2011ES00803

PATIENT
  Sex: Male
  Weight: 86.5 kg

DRUGS (8)
  1. BLINDED ENALAPRIL [Suspect]
     Indication: CARDIAC FAILURE
     Dosage: NO TREATMENT RECEIVED
  2. BISOPROLOL [Concomitant]
     Indication: CARDIAC FAILURE
     Dosage: UNK
  3. COMPARATOR ENALAPRIL [Suspect]
     Dosage: 10 MG, BID
     Route: 048
     Dates: start: 20110103
  4. ISOSORBIDE MONONITRATE [Concomitant]
     Indication: CARDIAC FAILURE
     Dosage: UNK
  5. COMPARATOR ENALAPRIL [Suspect]
     Dosage: NO TREATMENT RECEIVED
     Dates: start: 20110102, end: 20110102
  6. BLINDED NO TREATMENT RECEIVED [Suspect]
     Indication: CARDIAC FAILURE
     Dosage: NO TREATMENT RECEIVED
  7. BLINDED ALISKIREN [Suspect]
     Indication: CARDIAC FAILURE
     Dosage: NO TREATMENT RECEIVED
  8. COMPARATOR ENALAPRIL [Suspect]
     Indication: CARDIAC FAILURE
     Dosage: 10 MG, BID
     Route: 048
     Dates: start: 20101125, end: 20110101

REACTIONS (3)
  - DIVERTICULITIS [None]
  - ABDOMINAL PAIN [None]
  - CARDIAC FAILURE [None]
